FAERS Safety Report 9964583 (Version 2)
Quarter: 2014Q2

REPORT INFORMATION
  Report Type: Spontaneous
  Country: IT (occurrence: IT)
  Receive Date: 20140305
  Receipt Date: 20140501
  Transmission Date: 20141212
  Serious: Yes (Other)
  Sender: FDA-Public Use
  Company Number: IT-PFIZER INC-2014059216

PATIENT
  Age: 40 Year
  Sex: 0

DRUGS (1)
  1. DALACIN C FOSFATO [Suspect]
     Indication: INFECTION
     Dosage: SINGLE DOSE
     Route: 058
     Dates: start: 201402, end: 201402

REACTIONS (1)
  - Skin necrosis [Recovering/Resolving]
